FAERS Safety Report 5670131-7 (Version None)
Quarter: 2008Q1

REPORT INFORMATION
  Report Type: 
  Country: None (occurrence: None)
  Receive Date: 20080317
  Receipt Date: 20080225
  Transmission Date: 20080703
  Serious: Yes (Other)
  Sender: FDA-Public Use
  Company Number: PHHY2008AU02099

PATIENT
  Sex: Male

DRUGS (1)
  1. RITALIN [Suspect]

REACTIONS (3)
  - ASOCIAL BEHAVIOUR [None]
  - DRUG DEPENDENCE [None]
  - PHYSICAL ASSAULT [None]
